APPROVED DRUG PRODUCT: AMOXIL
Active Ingredient: AMOXICILLIN
Strength: 500MG
Dosage Form/Route: CAPSULE;ORAL
Application: A062216 | Product #004 | TE Code: AB
Applicant: US ANTIBIOTICS LLC
Approved: Approved Prior to Jan 1, 1982 | RLD: No | RS: No | Type: RX